FAERS Safety Report 10428554 (Version 6)
Quarter: 2015Q1

REPORT INFORMATION
  Report Type: Spontaneous
  Country: US (occurrence: US)
  Receive Date: 20140903
  Receipt Date: 20150130
  Transmission Date: 20150720
  Serious: Yes (Hospitalization, Disabling, Other)
  Sender: FDA-Public Use
  Company Number: US-009507513-1408USA016599

PATIENT
  Sex: Female
  Weight: 83.45 kg

DRUGS (4)
  1. FOSAMAX [Suspect]
     Active Substance: ALENDRONATE SODIUM
     Indication: OSTEOPOROSIS
     Dosage: 70 MG, QW
     Route: 048
     Dates: start: 200112, end: 20090211
  2. LASIX [Concomitant]
     Active Substance: FUROSEMIDE
     Dosage: UNK
     Dates: start: 20021125, end: 20110728
  3. ALENDRONATE SODIUM. [Suspect]
     Active Substance: ALENDRONATE SODIUM
     Indication: OSTEOPOROSIS
     Dosage: 70 MG, QW
     Route: 048
     Dates: start: 20080214, end: 2011
  4. ALDACTONE [Concomitant]
     Active Substance: SPIRONOLACTONE
     Dosage: UNK
     Dates: start: 20021125, end: 20110728

REACTIONS (18)
  - Femur fracture [Not Recovered/Not Resolved]
  - Dehydration [Unknown]
  - Lumbar spinal stenosis [Unknown]
  - Liver disorder [Not Recovered/Not Resolved]
  - Ascites [Unknown]
  - Oedema [Unknown]
  - Adverse event [Unknown]
  - Osteoporosis [Not Recovered/Not Resolved]
  - Blood glucose abnormal [Unknown]
  - Multiple fractures [Not Recovered/Not Resolved]
  - Abdominal hernia [Unknown]
  - Intramedullary rod insertion [Unknown]
  - Low turnover osteopathy [Unknown]
  - Skin disorder [Unknown]
  - Femur fracture [Recovered/Resolved]
  - Fluid retention [Unknown]
  - Vitamin D decreased [Unknown]
  - Cardiac murmur [Unknown]

NARRATIVE: CASE EVENT DATE: 20021125
